FAERS Safety Report 7124479-X (Version None)
Quarter: 2010Q4

REPORT INFORMATION
  Report Type: 
  Country: None (occurrence: None)
  Receive Date: 20101127
  Receipt Date: 20101116
  Transmission Date: 20110411
  Serious: Yes (Other)
  Sender: FDA-Public Use
  Company Number: PHHY2010DE79307

PATIENT
  Sex: Male

DRUGS (1)
  1. ZOMETA [Suspect]
     Dosage: EVERY 04 WEEKS
     Dates: start: 20100922

REACTIONS (7)
  - BACK PAIN [None]
  - BONE PAIN [None]
  - DENTAL OPERATION [None]
  - DYSPNOEA EXERTIONAL [None]
  - INFLUENZA LIKE ILLNESS [None]
  - SLEEP DISORDER [None]
  - VOCAL CORD PARALYSIS [None]
